FAERS Safety Report 5866462-8 (Version None)
Quarter: 2008Q3

REPORT INFORMATION
  Report Type: 
  Country: None (occurrence: None)
  Receive Date: 20080827
  Receipt Date: 20080811
  Transmission Date: 20090109
  Serious: Yes (Death)
  Sender: FDA-Public Use
  Company Number: 2008S1014808

PATIENT
  Age: 85 Year
  Sex: Female

DRUGS (9)
  1. AMIODARONE HCL [Suspect]
     Indication: TACHYCARDIA
     Dosage: 100 MG, DAILY, ORAL
     Route: 048
     Dates: start: 20051201, end: 20080128
  2. BISOPROLOL FUMARATE [Concomitant]
  3. FERROUS SULPHATE (FERROUS SULFATE) [Concomitant]
  4. FOLIC ACID (FOLIC ACID) [Concomitant]
  5. FRUSEMTDE (FUROSEMIDE) [Concomitant]
  6. GLICLAZIDE (GLICLAZIDE) [Concomitant]
  7. ACETAMINOPHEN [Concomitant]
  8. QUETIAPINE FUMARATE [Concomitant]
  9. TRIMETHOPRIM (TRIMETHOPRIM) [Concomitant]

REACTIONS (19)
  - AGGRESSION [None]
  - ANTISOCIAL BEHAVIOUR [None]
  - APPETITE DISORDER [None]
  - CEREBROVASCULAR DISORDER [None]
  - CONFUSIONAL STATE [None]
  - DYSARTHRIA [None]
  - EMOTIONAL DISTRESS [None]
  - GENERAL PHYSICAL HEALTH DETERIORATION [None]
  - HALLUCINATION [None]
  - INFLAMMATION [None]
  - MICTURITION URGENCY [None]
  - OEDEMA PERIPHERAL [None]
  - PARANOIA [None]
  - POOR QUALITY SLEEP [None]
  - POST THROMBOTIC SYNDROME [None]
  - PULMONARY FIBROSIS [None]
  - SKIN ULCER [None]
  - THYROIDITIS [None]
  - WEIGHT DECREASED [None]
